FAERS Safety Report 5800877-9 (Version None)
Quarter: 2008Q3

REPORT INFORMATION
  Report Type: 
  Country: None (occurrence: None)
  Receive Date: 20080703
  Receipt Date: 20080626
  Transmission Date: 20090109
  Serious: Yes (Congenital Anomaly)
  Sender: FDA-Public Use
  Company Number: US-ABBOTT-07P-163-0425119-00

PATIENT

DRUGS (3)
  1. NORVIR [Suspect]
     Indication: DRUG EXPOSURE DURING PREGNANCY
     Route: 064
  2. ATAZANAVIR SULFATE [Suspect]
     Indication: DRUG EXPOSURE DURING PREGNANCY
     Route: 064
  3. TRUVADA [Suspect]
     Indication: DRUG EXPOSURE DURING PREGNANCY
     Route: 064

REACTIONS (7)
  - CARDIAC MURMUR [None]
  - DRUG EXPOSURE DURING PREGNANCY [None]
  - INFLUENZA [None]
  - PREMATURE BABY [None]
  - PULMONARY ARTERY STENOSIS CONGENITAL [None]
  - RESPIRATORY SYNCYTIAL VIRUS INFECTION [None]
  - SKULL MALFORMATION [None]
